FAERS Safety Report 7007848-8 (Version None)
Quarter: 2010Q3

REPORT INFORMATION
  Report Type: 
  Country: None (occurrence: None)
  Receive Date: 20100922
  Receipt Date: 20100913
  Transmission Date: 20110219
  Serious: Yes (Hospitalization)
  Sender: FDA-Public Use
  Company Number: US-ASTRAZENECA-2010SE42967

PATIENT
  Age: 55 Year
  Sex: Male
  Weight: 98.5 kg

DRUGS (8)
  1. LISINOPRIL [Suspect]
     Route: 048
  2. LISINOPRIL [Suspect]
     Route: 048
  3. TOPROL-XL [Suspect]
     Route: 048
  4. SUNITINIB MALATE;SORAFENIB;PLACEBO (CODE NOT BROKEN) [Suspect]
     Indication: RENAL CELL CARCINOMA
     Route: 048
     Dates: start: 20090708
  5. HYDROCHLOROTHIAZIDE [Suspect]
  6. ACETYLSALICYLIC ACID [Suspect]
  7. PLAVIX [Suspect]
  8. TRAZODONE HCL [Concomitant]

REACTIONS (7)
  - CONVULSION [None]
  - EPISTAXIS [None]
  - FAECAL INCONTINENCE [None]
  - HYPERTENSION [None]
  - LOSS OF CONSCIOUSNESS [None]
  - SYNCOPE [None]
  - URINARY INCONTINENCE [None]
